FAERS Safety Report 12051762 (Version 1)
Quarter: 2016Q1

REPORT INFORMATION
  Report Type: Spontaneous
  Country: BE (occurrence: BE)
  Receive Date: 20160209
  Receipt Date: 20160209
  Transmission Date: 20160526
  Serious: Yes (Other)
  Sender: FDA-Public Use
  Company Number: BE-BAYER-2016-018519

PATIENT
  Age: 41 Year
  Sex: Female

DRUGS (1)
  1. MOXIFLOXACIN ORAL [Suspect]
     Active Substance: MOXIFLOXACIN
     Indication: SINUSITIS

REACTIONS (8)
  - Corneal pigmentation [Recovering/Resolving]
  - Vision blurred [Recovered/Resolved]
  - Ocular hypertension [Recovering/Resolving]
  - Iris transillumination defect [Recovering/Resolving]
  - Myopia [Recovering/Resolving]
  - Pupillary disorder [Recovering/Resolving]
  - Photophobia [Not Recovered/Not Resolved]
  - Iris adhesions [Recovering/Resolving]
